FAERS Safety Report 6468489-4 (Version None)
Quarter: 2009Q4

REPORT INFORMATION
  Report Type: 
  Country: None (occurrence: None)
  Receive Date: 20091202
  Receipt Date: 20091202
  Transmission Date: 20100525
  Serious: No
  Sender: FDA-Public Use
  Company Number: None

PATIENT
  Age: 71 Year
  Sex: Female
  Weight: 72.7 kg

DRUGS (1)
  1. LEVAQUIN [Suspect]
     Indication: SINUSITIS
     Dosage: 750MG QD ORAL
     Route: 048
     Dates: start: 20090318, end: 20090323

REACTIONS (5)
  - ARTHRALGIA [None]
  - FALL [None]
  - JOINT INJURY [None]
  - MUSCULAR WEAKNESS [None]
  - TENDONITIS [None]
